FAERS Safety Report 17302624 (Version 2)
Quarter: 2020Q1

REPORT INFORMATION
  Report Type: Spontaneous
  Country: US (occurrence: US)
  Receive Date: 20200122
  Receipt Date: 20200227
  Transmission Date: 20200409
  Serious: No
  Sender: FDA-Public Use
  Company Number: US-ASTRAZENECA-2019SF88620

PATIENT
  Age: 68 Year
  Sex: Female
  Weight: 61.7 kg

DRUGS (4)
  1. PULMICORT FLEXHALER [Suspect]
     Active Substance: BUDESONIDE
     Indication: DYSPNOEA
     Dosage: 180 MCG 1 ORAL INHALATION TWICE DAILY
     Route: 055
     Dates: start: 2019
  2. POTASSIUM [Concomitant]
     Active Substance: POTASSIUM
  3. VITAMIN D [Concomitant]
     Active Substance: VITAMIN D NOS
  4. PULMICORT FLEXHALER [Suspect]
     Active Substance: BUDESONIDE
     Indication: WHEEZING
     Dosage: 180 MCG 1 ORAL INHALATION TWICE DAILY
     Route: 055
     Dates: start: 2019

REACTIONS (5)
  - Device issue [Unknown]
  - Inability to afford medication [Unknown]
  - Dysgeusia [Unknown]
  - Intentional product misuse [Not Recovered/Not Resolved]
  - Incorrect dose administered [Unknown]

NARRATIVE: CASE EVENT DATE: 2019
